FAERS Safety Report 16796137 (Version 1)
Quarter: 2019Q3

REPORT INFORMATION
  Report Type: Report from Study
  Country: IE (occurrence: IE)
  Receive Date: 20190911
  Receipt Date: 20190911
  Transmission Date: 20191005
  Serious: Yes (Other)
  Sender: FDA-Public Use
  Company Number: IE-JNJFOC-20190905388

PATIENT
  Age: 6 Decade
  Sex: Male

DRUGS (15)
  1. FOLIC ACID. [Concomitant]
     Active Substance: FOLIC ACID
     Route: 050
  2. NAUDICELLE [Concomitant]
     Route: 050
  3. ERTHROCIN [Concomitant]
     Active Substance: ERYTHROMYCIN
     Route: 065
  4. PERINFOPRIL [Concomitant]
     Route: 050
  5. INSPRA [Concomitant]
     Active Substance: EPLERENONE
     Route: 065
  6. PREDNISOLE [Concomitant]
     Route: 050
  7. EMAZOLE [Concomitant]
     Active Substance: ESOMEPRAZOLE
     Route: 050
  8. ATROVASTATIN [Concomitant]
     Active Substance: ATORVASTATIN CALCIUM
     Route: 050
  9. XANAX [Concomitant]
     Active Substance: ALPRAZOLAM
     Route: 050
  10. THEOPHYLLINE [Concomitant]
     Active Substance: THEOPHYLLINE ANHYDROUS
     Route: 050
  11. STELARA [Suspect]
     Active Substance: USTEKINUMAB
     Indication: PSORIATIC ARTHROPATHY
     Route: 058
     Dates: start: 20181125
  12. METHOTREXATE. [Concomitant]
     Active Substance: METHOTREXATE
     Route: 050
  13. BURINEX [Concomitant]
     Active Substance: BUMETANIDE
     Route: 050
  14. SERLIN [Concomitant]
     Route: 065
  15. NEOTIGASON [Concomitant]
     Active Substance: ACITRETIN
     Route: 050

REACTIONS (2)
  - Lower respiratory tract infection [Recovered/Resolved]
  - Psoriasis [Not Recovered/Not Resolved]

NARRATIVE: CASE EVENT DATE: 20190819
